FAERS Safety Report 7763541-5 (Version None)
Quarter: 2011Q3

REPORT INFORMATION
  Report Type: 
  Country: None (occurrence: None)
  Receive Date: 20110920
  Receipt Date: 20110907
  Transmission Date: 20111222
  Serious: Yes (Death, Hospitalization)
  Sender: FDA-Public Use
  Company Number: FR-GENENTECH-294104

PATIENT
  Sex: Male
  Weight: 59 kg

DRUGS (20)
  1. RITUXIMAB [Suspect]
     Indication: DIFFUSE LARGE B-CELL LYMPHOMA
     Dosage: 660 MG, Q3W
     Route: 042
     Dates: start: 20090129, end: 20090403
  2. BLINDED RITUXIMAB [Suspect]
     Dosage: UNK G, Q3W
     Route: 042
     Dates: start: 20090129, end: 20090403
  3. VINCRISTINE [Suspect]
     Indication: DIFFUSE LARGE B-CELL LYMPHOMA
     Dosage: 2 MG, Q3W
     Route: 042
     Dates: start: 20090129, end: 20090403
  4. UROMITEXAN [Concomitant]
     Indication: LYMPHOMA
     Dosage: 2100 MG, UNK
     Route: 042
     Dates: start: 20090428, end: 20090530
  5. CYTARABINE [Concomitant]
     Indication: LYMPHOMA
     Dosage: 40 MG, UNK
     Route: 042
     Dates: start: 20090701, end: 20090923
  6. CYCLOPHOSPHAMIDE [Suspect]
     Indication: DIFFUSE LARGE B-CELL LYMPHOMA
     Dosage: 1310 MG, Q3W
     Route: 042
     Dates: start: 20090129, end: 20090403
  7. PREDNISONE [Suspect]
     Indication: DIFFUSE LARGE B-CELL LYMPHOMA
     Dosage: 60 MG, Q3W
     Route: 048
     Dates: start: 20090129, end: 20090403
  8. CYCLOPHOSPHAMIDE [Suspect]
     Dosage: UNK G, Q3W
     Route: 042
     Dates: start: 20090129, end: 20090403
  9. DOXORUBICIN HCL [Suspect]
     Indication: DIFFUSE LARGE B-CELL LYMPHOMA
     Dosage: 88 MG, Q3W
     Route: 042
     Dates: start: 20090129, end: 20090403
  10. IFOSFAMIDE [Concomitant]
     Indication: LYMPHOMA
     Dosage: 1750 MG, UNK
     Route: 042
     Dates: start: 20090428, end: 20090530
  11. METHOTREXATE [Concomitant]
     Indication: LYMPHOMA
     Dosage: 5040 MG, UNK
     Route: 042
     Dates: start: 20090804, end: 20090804
  12. CARMUSTINE [Concomitant]
     Indication: LYMPHOMA
     Dosage: 190 MG, UNK
     Route: 042
     Dates: start: 20090710, end: 20090925
  13. BLINDED PLACEBO [Suspect]
     Dosage: UNK G, Q3W
     Route: 042
     Dates: start: 20090129, end: 20090403
  14. PREDNISONE TAB [Suspect]
     Dosage: UNK G, Q3W
     Route: 042
     Dates: start: 20090129, end: 20090403
  15. ZOCOR [Concomitant]
     Indication: PRODUCT USED FOR UNKNOWN INDICATION
     Dosage: UNK
  16. METHYLPREDNISOLONE [Concomitant]
     Indication: LYMPHOMA
     Dosage: 60 MG, UNK
     Route: 042
     Dates: start: 20090711, end: 20090926
  17. ETOPOSIDE [Concomitant]
     Indication: LYMPHOMA
     Dosage: 180 MG, UNK
     Route: 042
     Dates: start: 20090428, end: 20090528
  18. BLINDED BEVACIZUMAB [Suspect]
     Dosage: UNK G, Q3W
     Route: 042
     Dates: start: 20090129, end: 20090403
  19. DOXORUBICIN HCL [Suspect]
     Dosage: UNK G, Q3W
     Route: 042
     Dates: start: 20090129, end: 20090403
  20. VINCRISTINE [Suspect]
     Dosage: UNK G, Q3W
     Route: 042
     Dates: start: 20090129, end: 20090403

REACTIONS (3)
  - LEUKOENCEPHALOPATHY [None]
  - CEREBROVASCULAR ACCIDENT [None]
  - FEBRILE NEUTROPENIA [None]
